FAERS Safety Report 11113121 (Version 2)
Quarter: 2015Q2

REPORT INFORMATION
  Report Type: Report from Study
  Country: GB (occurrence: GB)
  Receive Date: 20150514
  Receipt Date: 20150617
  Transmission Date: 20150821
  Serious: Yes (Disabling)
  Sender: FDA-Public Use
  Company Number: PHFR2015GB003564

PATIENT
  Age: 46 Year
  Sex: Female

DRUGS (1)
  1. GILENYA [Suspect]
     Active Substance: FINGOLIMOD HYDROCHLORIDE
     Indication: RELAPSING-REMITTING MULTIPLE SCLEROSIS
     Dosage: UNK
     Route: 065
     Dates: start: 20140310

REACTIONS (5)
  - Lymphocyte count decreased [Unknown]
  - Oral candidiasis [Not Recovered/Not Resolved]
  - Glossodynia [Not Recovered/Not Resolved]
  - Fall [Unknown]
  - Muscular weakness [Unknown]

NARRATIVE: CASE EVENT DATE: 20141205
